FAERS Safety Report 19929986 (Version 2)
Quarter: 2021Q4

REPORT INFORMATION
  Report Type: Report from Study
  Country: US (occurrence: US)
  Receive Date: 20211007
  Receipt Date: 20211101
  Transmission Date: 20220303
  Serious: Yes (Death, Other)
  Sender: FDA-Public Use
  Company Number: US-ACADIA PHARMACEUTICALS INC.-ACA-2021-PIM-003507

PATIENT
  Sex: Male

DRUGS (21)
  1. NUPLAZID [Suspect]
     Active Substance: PIMAVANSERIN TARTRATE
     Indication: Parkinson^s disease psychosis
     Dosage: 34 MILLIGRAM, QD
     Route: 048
     Dates: start: 20210506
  2. NUPLAZID [Suspect]
     Active Substance: PIMAVANSERIN TARTRATE
     Indication: Delusion
     Dosage: 34 MILLIGRAM, QD
     Route: 048
     Dates: start: 202107, end: 202109
  3. NUPLAZID [Suspect]
     Active Substance: PIMAVANSERIN TARTRATE
     Indication: Hallucination
  4. ELIQUIS [Concomitant]
     Active Substance: APIXABAN
     Dosage: 5 MILLIGRAM, BID
     Route: 048
  5. APOKYN [Concomitant]
     Active Substance: APOMORPHINE HYDROCHLORIDE
     Dosage: 30 MG/3ML SOLUTION CARTRIDGE, 0.2 ML TID PRN
     Route: 058
     Dates: start: 20200929
  6. ATROPINE SULFATE [Concomitant]
     Active Substance: ATROPINE SULFATE
     Indication: Drooling
     Dosage: 1 DROP UNDER THE TONGUE EVERY 4 HOURS AS NEEDED
     Route: 060
  7. RYTARY [Concomitant]
     Active Substance: CARBIDOPA\LEVODOPA
     Dosage: 48.75-195 MG, 3 CAPS TID
     Route: 048
     Dates: start: 20210311
  8. COLCHICINE;PROBENECID [Concomitant]
     Dosage: 0.5-500 MG 1 TAB QD
     Route: 048
  9. DIVALPROEX SODIUM [Concomitant]
     Active Substance: DIVALPROEX SODIUM
     Dosage: 250 MILLIGRAM, BID
     Route: 048
  10. DONEPEZIL HYDROCHLORIDE [Concomitant]
     Active Substance: DONEPEZIL HYDROCHLORIDE
     Dosage: 5 MILLIGRAM, QD AT BEDTIME
     Route: 048
     Dates: start: 20210609
  11. FLUOXETINE HYDROCHLORIDE [Concomitant]
     Active Substance: FLUOXETINE HYDROCHLORIDE
     Dosage: 80 MILLIGRAM, BID
     Route: 048
     Dates: start: 20210304
  12. KEPPRA [Concomitant]
     Active Substance: LEVETIRACETAM
     Dosage: 250 MILLIGRAM EVERY 12 HRS
     Route: 048
     Dates: start: 20210826
  13. MELOXICAM [Concomitant]
     Active Substance: MELOXICAM
     Dosage: 7.5 MG QD
     Route: 048
  14. METHYLPHENIDATE HYDROCHLORIDE [Concomitant]
     Active Substance: METHYLPHENIDATE HYDROCHLORIDE
     Dosage: 20 MILLIGRAM, QD
     Route: 048
     Dates: start: 20201006
  15. LOTRIMIN AF [MICONAZOLE NITRATE] [Concomitant]
     Dosage: 2 % EXTERNAL POWDER, 1 APPLICATION TOPICALLY TO AFFECTED AREA
     Route: 061
     Dates: start: 20210609
  16. NYSTATIN [Concomitant]
     Active Substance: NYSTATIN
     Indication: Fungal infection
     Dosage: 100000 UNIT/GM, 2-3 TIMES A DAY PRN
     Route: 061
     Dates: start: 20210813
  17. POTASSIUM CHLORIDE [Concomitant]
     Active Substance: POTASSIUM CHLORIDE
     Dosage: 10 MEQ MICROENCAPSULATED CRYSTALS ER
     Route: 048
  18. PRAVASTATIN SODIUM [Concomitant]
     Active Substance: PRAVASTATIN SODIUM
     Dosage: 40 MILLIGRAM, QD
     Route: 048
  19. SEROQUEL [Concomitant]
     Active Substance: QUETIAPINE FUMARATE
     Dosage: 100 MILLIGRAM, BID
     Route: 048
     Dates: start: 20210609
  20. SCOPOLAMINE [Concomitant]
     Active Substance: SCOPOLAMINE
     Indication: Secretion discharge
     Dosage: 1 MG/3DAYS PATCH 72 HOUR, EVERY 3 DAYS BEIND EAR AS NEEDED
     Route: 062
     Dates: start: 20210609
  21. VALSARTAN AND HYDROCHLOROTHIAZIDE [Concomitant]
     Active Substance: HYDROCHLOROTHIAZIDE\VALSARTAN
     Dosage: 160-12.5 TAB QD
     Route: 048

REACTIONS (1)
  - Parkinson^s disease [Recovered/Resolved]
